FAERS Safety Report 7314394-0 (Version None)
Quarter: 2011Q1

REPORT INFORMATION
  Report Type: 
  Country: None (occurrence: None)
  Receive Date: 20110225
  Receipt Date: 20100806
  Transmission Date: 20110831
  Serious: No
  Sender: FDA-Public Use
  Company Number: US-MYLANLABS-2010S1014574

PATIENT
  Age: 16 Year
  Sex: Male

DRUGS (3)
  1. CLARAVIS [Suspect]
  2. SOTRET [Suspect]
  3. AMNESTEEM [Suspect]

REACTIONS (3)
  - HEADACHE [None]
  - DRY SKIN [None]
  - LIP DRY [None]
